FAERS Safety Report 7229908-9 (Version None)
Quarter: 2011Q1

REPORT INFORMATION
  Report Type: 
  Country: None (occurrence: None)
  Receive Date: 20110117
  Receipt Date: 20101208
  Transmission Date: 20110831
  Serious: Yes (Death, Other)
  Sender: FDA-Public Use
  Company Number: US-BAXTER-2009BH019482

PATIENT
  Age: 72 Year
  Sex: Male

DRUGS (23)
  1. HEPARIN SODIUM INJECTION [Suspect]
     Route: 042
     Dates: start: 20080207, end: 20080207
  2. HEPARIN SODIUM INJECTION [Suspect]
     Route: 042
     Dates: start: 20080321, end: 20080321
  3. POTASSIUM CHLORIDE [Concomitant]
     Indication: PRODUCT USED FOR UNKNOWN INDICATION
     Route: 048
  4. HYDROCODONE [Concomitant]
     Indication: PRODUCT USED FOR UNKNOWN INDICATION
     Route: 048
  5. ASPIRIN [Concomitant]
     Indication: PRODUCT USED FOR UNKNOWN INDICATION
     Route: 048
  6. SIMVASTATIN [Concomitant]
     Indication: PRODUCT USED FOR UNKNOWN INDICATION
     Route: 048
  7. HEPARIN SODIUM INJECTION [Suspect]
     Route: 042
     Dates: start: 20080211, end: 20080211
  8. HEPARIN SODIUM INJECTION [Suspect]
     Route: 042
     Dates: start: 20080325, end: 20080325
  9. METOPROLOL [Concomitant]
     Indication: PRODUCT USED FOR UNKNOWN INDICATION
     Route: 048
  10. TAMSULOSIN [Concomitant]
     Indication: PRODUCT USED FOR UNKNOWN INDICATION
     Route: 048
  11. LASIX [Concomitant]
     Indication: PRODUCT USED FOR UNKNOWN INDICATION
     Route: 048
  12. DOBUTAMINE HCL [Concomitant]
     Indication: PRODUCT USED FOR UNKNOWN INDICATION
     Route: 065
  13. COLACE [Concomitant]
     Indication: PRODUCT USED FOR UNKNOWN INDICATION
     Route: 048
  14. MYLANTA [Concomitant]
     Indication: PRODUCT USED FOR UNKNOWN INDICATION
     Route: 048
  15. ACETAMINOPHEN [Concomitant]
     Indication: PRODUCT USED FOR UNKNOWN INDICATION
     Route: 048
  16. HEPARIN SODIUM INJECTION [Suspect]
     Route: 042
     Dates: start: 20080212, end: 20080212
  17. HEPARIN SODIUM INJECTION [Suspect]
     Route: 042
     Dates: start: 20080322, end: 20080322
  18. MEGACE [Concomitant]
     Indication: PRODUCT USED FOR UNKNOWN INDICATION
     Route: 048
  19. HEPARIN SODIUM INJECTION [Suspect]
     Indication: VASCULAR OPERATION
     Route: 042
     Dates: start: 20080207, end: 20080207
  20. RESTORIL [Concomitant]
     Indication: PRODUCT USED FOR UNKNOWN INDICATION
     Route: 048
  21. RIFAMPIN [Concomitant]
     Indication: PRODUCT USED FOR UNKNOWN INDICATION
     Route: 048
  22. BACTRIM DS [Concomitant]
     Indication: PRODUCT USED FOR UNKNOWN INDICATION
     Route: 048
  23. INSULIN [Concomitant]
     Indication: PRODUCT USED FOR UNKNOWN INDICATION
     Route: 065

REACTIONS (30)
  - CARDIAC ARREST [None]
  - FLUID OVERLOAD [None]
  - DECUBITUS ULCER [None]
  - HAEMATOMA [None]
  - MYOCARDIAL INFARCTION [None]
  - SEPTIC SHOCK [None]
  - HEPARIN-INDUCED THROMBOCYTOPENIA [None]
  - PULMONARY CONGESTION [None]
  - ATELECTASIS [None]
  - ANAEMIA [None]
  - ATRIAL FIBRILLATION [None]
  - ENCEPHALOPATHY [None]
  - DELIRIUM [None]
  - MULTI-ORGAN FAILURE [None]
  - ASCITES [None]
  - RESPIRATORY FAILURE [None]
  - HYPOTENSION [None]
  - INCREASED BRONCHIAL SECRETION [None]
  - LIVER FUNCTION TEST ABNORMAL [None]
  - ENDOCARDITIS BACTERIAL [None]
  - COAGULOPATHY [None]
  - HEPARIN-INDUCED THROMBOCYTOPENIA TEST [None]
  - ASTHENIA [None]
  - CEREBROVASCULAR ACCIDENT [None]
  - RENAL FAILURE ACUTE [None]
  - THROMBOCYTOPENIA [None]
  - DYSPHAGIA [None]
  - LUNG INFECTION PSEUDOMONAL [None]
  - PLEURAL EFFUSION [None]
  - DIVERTICULITIS [None]
